FAERS Safety Report 7417937-1 (Version None)
Quarter: 2011Q2

REPORT INFORMATION
  Report Type: 
  Country: None (occurrence: None)
  Receive Date: 20110406
  Receipt Date: 20110331
  Transmission Date: 20111010
  Serious: Yes (Death, Hospitalization)
  Sender: FDA-Public Use
  Company Number: CAP10000436

PATIENT
  Age: 81 Year
  Sex: Female

DRUGS (25)
  1. CIPRO [Concomitant]
  2. COLACE (DOCUSATE SODIUM) [Concomitant]
  3. FERROUS SULFATE TAB [Concomitant]
  4. LASIX [Concomitant]
  5. METOPROLOL (METOPROLOL) [Concomitant]
  6. ERGOCALCIFEROL [Concomitant]
  7. ACETAMINOPHEN [Concomitant]
  8. AMOXIL /00249601/ (AMOXICILLIN) [Concomitant]
  9. CALCITONIN (CALCITONIN) [Concomitant]
  10. CIPRO XL (CIPROFLOXACIN HYDROCHLORIDE) [Concomitant]
  11. PREDNISONE [Concomitant]
  12. PANTOLOC /01263201/ (PANTOPRAZOLE) [Concomitant]
  13. AGRYLIN [Concomitant]
  14. ATROVENT [Concomitant]
  15. SYNTHROID [Concomitant]
  16. VANCOCIN (VANCOMYCIN HYDROCHLORIDE) [Concomitant]
  17. MACROBID [Suspect]
     Indication: PROPHYLAXIS
     Dosage: 50 MG AT BEDTIME, ORAL
     Route: 048
     Dates: start: 20090101, end: 20100101
  18. MACROBID [Suspect]
     Indication: URINARY TRACT INFECTION
     Dosage: 50 MG AT BEDTIME, ORAL
     Route: 048
     Dates: start: 20090101, end: 20100101
  19. FOSAMAX [Concomitant]
  20. IMOVANE (ZOPICLONE) [Concomitant]
  21. NORVASC [Concomitant]
  22. URSODIOL [Concomitant]
  23. ACETYLSALICYLIC ACID (ACETYLSALICYLIC ACID) [Concomitant]
  24. LYRICA [Concomitant]
  25. SUPEUDOL (OXYCODONE HYDROCHLORIDE) [Concomitant]

REACTIONS (3)
  - RASH MACULO-PAPULAR [None]
  - ACUTE HEPATIC FAILURE [None]
  - THROMBOCYTOPENIA [None]
